FAERS Safety Report 7555560-9 (Version None)
Quarter: 2011Q2

REPORT INFORMATION
  Report Type: 
  Country: None (occurrence: None)
  Receive Date: 20110617
  Receipt Date: 20051028
  Transmission Date: 20111010
  Serious: Yes (Hospitalization, Other)
  Sender: FDA-Public Use
  Company Number: PHFR2005GB03464

PATIENT
  Sex: Female

DRUGS (1)
  1. CLOZAPINE [Suspect]
     Indication: SCHIZOPHRENIA
     Dosage: 150 MG DAILY
     Route: 048
     Dates: start: 20040318, end: 20051011

REACTIONS (6)
  - MUSCLE RIGIDITY [None]
  - DECREASED APPETITE [None]
  - BLOOD POTASSIUM DECREASED [None]
  - HYPERVENTILATION [None]
  - ELECTROLYTE IMBALANCE [None]
  - GASTROENTERITIS [None]
